FAERS Safety Report 7763874-2 (Version None)
Quarter: 2011Q3

REPORT INFORMATION
  Report Type: 
  Country: None (occurrence: None)
  Receive Date: 20110921
  Receipt Date: 20101202
  Transmission Date: 20111222
  Serious: Yes (Other)
  Sender: FDA-Public Use
  Company Number: DE-BAYER-201046884GPV

PATIENT
  Sex: Female

DRUGS (3)
  1. BETASERON [Suspect]
     Indication: MULTIPLE SCLEROSIS
     Dosage: 250 ?G, UNK
     Route: 058
     Dates: start: 20041025, end: 20100707
  2. BETASERON [Suspect]
     Dosage: 62.5 ?G, UNK
     Dates: start: 20110101
  3. CETIRIZINE HCL [Concomitant]
     Indication: CONJUNCTIVITIS

REACTIONS (5)
  - ANGIOEDEMA [None]
  - FEELING HOT [None]
  - MIGRAINE [None]
  - HYPERSENSITIVITY [None]
  - PRURITUS [None]
